FAERS Safety Report 7794073-6 (Version None)
Quarter: 2011Q4

REPORT INFORMATION
  Report Type: 
  Country: None (occurrence: None)
  Receive Date: 20111004
  Receipt Date: 20110929
  Transmission Date: 20120403
  Serious: Yes (Other)
  Sender: FDA-Public Use
  Company Number: DE-AMGEN-DEUSP2011018874

PATIENT
  Age: 75 Year
  Sex: Female
  Weight: 46 kg

DRUGS (5)
  1. IBUPROFEN [Concomitant]
     Dosage: 600 MG, PRN
  2. VERAPAMIL [Concomitant]
     Dosage: 240 MG, QD
     Dates: start: 20081211
  3. PANTOPRAZOLE [Concomitant]
     Dosage: 20 MG, PRN
  4. PROLIA [Suspect]
     Indication: OSTEOPOROSIS
     Dosage: 60 MG, Q6MO
     Dates: start: 20101029, end: 20101029
  5. AMLODIPINE [Concomitant]
     Dosage: UNK
     Dates: start: 20090216

REACTIONS (2)
  - OTITIS MEDIA [None]
  - TYMPANIC MEMBRANE PERFORATION [None]
